FAERS Safety Report 11593908 (Version 1)
Quarter: 2015Q4

REPORT INFORMATION
  Report Type: Spontaneous
  Country: US (occurrence: US)
  Receive Date: 20151005
  Receipt Date: 20151005
  Transmission Date: 20160304
  Serious: Yes (Other)
  Sender: FDA-Public Use
  Company Number: US-BANPHARM-20154269

PATIENT
  Age: 42 Year
  Sex: Female

DRUGS (2)
  1. LOPERAMIDE UNKNOWN PRODUCT [Suspect]
     Active Substance: LOPERAMIDE
     Indication: PAIN
     Dosage: DF 60-70 TABLETS (120-140MG),QD FOR ONE WEEK,
  2. CIMETIDINE [Suspect]
     Active Substance: CIMETIDINE
     Dosage: DF 6 TABLETS, QD,

REACTIONS (4)
  - Drug withdrawal syndrome [Recovered/Resolved]
  - Vomiting [Recovered/Resolved]
  - Anxiety [Recovered/Resolved]
  - Diarrhoea [Recovered/Resolved]
